FAERS Safety Report 9581229 (Version 1)
Quarter: 2013Q4

REPORT INFORMATION
  Report Type: Spontaneous
  Country: DE (occurrence: DE)
  Receive Date: 20131002
  Receipt Date: 20131002
  Transmission Date: 20140711
  Serious: Yes (Death)
  Sender: FDA-Public Use
  Company Number: GXKR2013DE003156

PATIENT
  Sex: 0

DRUGS (13)
  1. SULFAMETHOXAZOLE+TRIMETHOPRIM [Suspect]
     Indication: OROPHARYNGEAL PAIN
     Dates: start: 20130830, end: 20130908
  2. METAMIZOLE [Suspect]
     Indication: OROPHARYNGEAL PAIN
     Dosage: 30 GTT, TID
     Route: 048
     Dates: start: 20130829, end: 20130909
  3. DIHYDROCODEINE [Concomitant]
     Dosage: 20 GTT, TID
     Route: 048
     Dates: start: 20130829, end: 20130909
  4. COLECALCIFEROL [Concomitant]
     Dosage: 1000 IU, QD
     Route: 048
     Dates: end: 20130909
  5. PANTOPRAZOL [Concomitant]
     Indication: GASTRITIS PROPHYLAXIS
     Dosage: 40 MG, QD
     Route: 048
     Dates: end: 20130909
  6. LEVOTHYROXIN [Concomitant]
     Indication: THYROIDECTOMY
     Dosage: 50 UG, QD
     Route: 048
     Dates: end: 20130909
  7. CALCIUM CARBONATE [Concomitant]
     Dosage: 1000 MG, QD
     Route: 048
     Dates: end: 20130909
  8. ACC [Concomitant]
     Dosage: 600 MG, BID
     Route: 048
     Dates: start: 20130829, end: 20130909
  9. THYME EXTRACT [Concomitant]
     Dosage: 30 GTT, TID
     Dates: start: 20130829, end: 20130909
  10. PRIMULA SPP. [Concomitant]
     Dosage: 30 GTT, TID
     Dates: start: 20130829, end: 20130909
  11. ASS [Concomitant]
     Indication: TRANSIENT ISCHAEMIC ATTACK
     Dosage: 100 MG, QD
     Route: 048
     Dates: end: 20130909
  12. METHOTREXAT [Concomitant]
     Indication: POLYMYALGIA RHEUMATICA
     Dosage: 10 MG, QW
     Route: 048
     Dates: end: 20130829
  13. IBUPROFEN [Concomitant]
     Indication: PITUITARY TUMOUR BENIGN
     Dosage: 400 MG, PRN
     Route: 048
     Dates: start: 20130814, end: 20130829

REACTIONS (4)
  - Pancytopenia [Fatal]
  - Pulmonary sepsis [Fatal]
  - Neutropenic colitis [Fatal]
  - Drug eruption [Fatal]
